FAERS Safety Report 9281700 (Version 1)
Quarter: 2013Q2

REPORT INFORMATION
  Report Type: Spontaneous
  Country: US (occurrence: US)
  Receive Date: 20130509
  Receipt Date: 20130509
  Transmission Date: 20140414
  Serious: Yes (Other)
  Sender: FDA-Public Use
  Company Number: US-AMGEN-USASP2013031733

PATIENT
  Age: 61 Year
  Sex: Female

DRUGS (2)
  1. PROLIA [Suspect]
     Indication: PRODUCT USED FOR UNKNOWN INDICATION
  2. MOBIC [Concomitant]

REACTIONS (1)
  - Rotator cuff syndrome [Unknown]
